FAERS Safety Report 10092173 (Version 2)
Quarter: 2014Q2

REPORT INFORMATION
  Report Type: Spontaneous
  Country: US (occurrence: US)
  Receive Date: 20140421
  Receipt Date: 20140421
  Transmission Date: 20141212
  Serious: No
  Sender: FDA-Public Use
  Company Number: US-SANOFI-AVENTIS-2013SA015856

PATIENT
  Age: 71 Year
  Sex: Female
  Weight: 56 kg

DRUGS (2)
  1. ALLEGRA ALLERGY, 12 HR [Suspect]
     Indication: HYPERSENSITIVITY
     Route: 048
  2. ALLEGRA ALLERGY, 12 HR [Suspect]
     Indication: HYPERSENSITIVITY
     Route: 048

REACTIONS (5)
  - Dry eye [Recovered/Resolved]
  - Ventricular extrasystoles [Recovered/Resolved]
  - Heart rate increased [Recovered/Resolved]
  - Tension [Recovered/Resolved]
  - Dry mouth [Recovered/Resolved]
